FAERS Safety Report 9814888 (Version 2)
Quarter: 2014Q1

REPORT INFORMATION
  Report Type: Spontaneous
  Country: JP (occurrence: JP)
  Receive Date: 20140113
  Receipt Date: 20140128
  Transmission Date: 20141002
  Serious: Yes (Death)
  Sender: FDA-Public Use
  Company Number: JP-GLAXOSMITHKLINE-B0959416A

PATIENT
  Age: 90 Year
  Sex: Female

DRUGS (21)
  1. ARIXTRA [Suspect]
     Indication: THROMBOSIS PROPHYLAXIS
     Dosage: 1.5MG PER DAY
     Route: 058
     Dates: start: 20131221, end: 20131229
  2. OLMETEC [Concomitant]
     Indication: HYPERTENSION
     Dosage: 20MG PER DAY
     Route: 048
     Dates: start: 20131217, end: 20131229
  3. ARICEPT [Concomitant]
     Indication: DEMENTIA
     Dosage: 5MG PER DAY
     Route: 048
     Dates: start: 20131226, end: 20131229
  4. MEMARY [Concomitant]
     Indication: DEMENTIA
     Dosage: 5MG PER DAY
     Route: 048
     Dates: start: 20131217, end: 20131229
  5. NEXIUM [Concomitant]
     Dosage: 20MG PER DAY
     Route: 048
     Dates: start: 20131217, end: 20131228
  6. PURSENNID [Concomitant]
     Dosage: 24MG PER DAY
     Route: 048
     Dates: start: 20131217, end: 20131228
  7. DEPAS [Concomitant]
     Dosage: .5MG PER DAY
     Route: 048
     Dates: start: 20131217, end: 20131228
  8. MYSLEE [Concomitant]
     Dosage: 5MG PER DAY
     Route: 048
     Dates: start: 20131217, end: 20131228
  9. LOXONIN [Concomitant]
     Dosage: 60MG THREE TIMES PER DAY
     Route: 048
     Dates: start: 20131217, end: 20131229
  10. MUCOSTA [Concomitant]
     Dosage: 100MG THREE TIMES PER DAY
     Route: 048
     Dates: start: 20131217, end: 20131229
  11. MIYA BM [Concomitant]
     Dosage: 1IUAX THREE TIMES PER DAY
     Route: 048
     Dates: start: 20131217, end: 20131229
  12. MAGLAX [Concomitant]
     Dosage: 330MG THREE TIMES PER DAY
     Route: 048
     Dates: start: 20131217, end: 20131229
  13. SEROQUEL [Concomitant]
     Dosage: 25MG PER DAY
     Route: 048
     Dates: start: 20131217, end: 20131228
  14. UNKNOWN [Concomitant]
     Dosage: 2IUAX PER DAY
     Route: 048
     Dates: start: 20131219, end: 20131229
  15. CALBLOCK [Concomitant]
     Dosage: 16MG PER DAY
     Route: 048
     Dates: start: 20131228, end: 20131229
  16. SOLITA-T NO.3 [Concomitant]
     Route: 042
     Dates: start: 20131217, end: 20131229
  17. KASHILON [Concomitant]
     Route: 042
     Dates: start: 20131217, end: 20131229
  18. PENTCILLIN [Concomitant]
     Dosage: 2G TWICE PER DAY
     Route: 042
     Dates: start: 20131218, end: 20131224
  19. INTRALIPOS [Concomitant]
     Dosage: 250ML PER DAY
     Route: 042
     Dates: start: 20131217, end: 20131229
  20. DENOSUMAB [Concomitant]
     Route: 058
     Dates: start: 20131219, end: 20131219
  21. ATARAX [Concomitant]
     Route: 030
     Dates: start: 20131218, end: 20131218

REACTIONS (1)
  - Brain stem haemorrhage [Fatal]
